FAERS Safety Report 23886350 (Version 1)
Quarter: 2024Q2

REPORT INFORMATION
  Report Type: Spontaneous
  Country: AT (occurrence: AT)
  Receive Date: 20240522
  Receipt Date: 20240522
  Transmission Date: 20240716
  Serious: Yes (Hospitalization, Other)
  Sender: FDA-Public Use
  Company Number: None

PATIENT
  Age: 67 Year
  Sex: Female
  Weight: 47 kg

DRUGS (12)
  1. KEYTRUDA [Suspect]
     Active Substance: PEMBROLIZUMAB
     Route: 042
     Dates: start: 20231027, end: 20240328
  2. CANDESARTAN/HIDROCLOROTIAZIDA SANDOZ [Concomitant]
     Route: 048
  3. ASPIRIN [Concomitant]
     Active Substance: ASPIRIN
     Dosage: (1 - 0 - 0 - 0)
     Route: 048
  4. METFORMIN HEXAL PHARMA [Concomitant]
     Route: 048
  5. ATORVASTATIN [Concomitant]
     Active Substance: ATORVASTATIN
     Route: 048
  6. ATORVASTATIN CALCIUM [Concomitant]
     Active Substance: ATORVASTATIN CALCIUM
     Dates: start: 20231026, end: 20240328
  7. ONDANSETRON [Concomitant]
     Active Substance: ONDANSETRON
     Dosage: (1 - 0 - 1 - 0)
     Route: 048
  8. PANTOPRAZOLE SODIUM [Concomitant]
     Active Substance: PANTOPRAZOLE SODIUM
     Dosage: (1 - 0 - 0 - 0)
     Route: 048
  9. AMLODIPIN GENERICON PHARMA [Concomitant]
     Dosage: (1 - 0 - 1 - 0)
     Route: 048
  10. LEVETIRACETAM [Concomitant]
     Active Substance: LEVETIRACETAM
     Dosage: (0.5 - 0 - 0.5 - 0)
     Route: 048
  11. CYANOCOBALAMIN\PYRIDOXINE\THIAMINE [Concomitant]
     Active Substance: CYANOCOBALAMIN\PYRIDOXINE\THIAMINE
     Dosage: (1 - 0 - 0 - 0)
     Route: 048
  12. CANDAM [Concomitant]
     Route: 048

REACTIONS (1)
  - Acute kidney injury [Not Recovered/Not Resolved]

NARRATIVE: CASE EVENT DATE: 20240419
